FAERS Safety Report 4714473-8 (Version None)
Quarter: 2005Q3

REPORT INFORMATION
  Report Type: 
  Country: None (occurrence: None)
  Receive Date: 20050712
  Receipt Date: 20050630
  Transmission Date: 20060218
  Serious: No
  Sender: FDA-Public Use
  Company Number: 11727

PATIENT

DRUGS (5)
  1. FLUOROURACIL [Suspect]
     Indication: COLORECTAL CANCER METASTATIC
     Dosage: 2.3 G/M2 PER-CYCLE, IV
     Route: 042
  2. LEUCOVORIN [Suspect]
     Indication: COLORECTAL CANCER METASTATIC
     Dosage: 30 MG PER-CYCLE, IV
     Route: 042
  3. IRINOTECAN [Suspect]
     Indication: COLORECTAL CANCER METASTATIC
     Dosage: 80 MG/M2 PER-CYCLE; IV
     Route: 042
  4. OXALIPLATIN [Suspect]
     Indication: COLORECTAL CANCER METASTATIC
     Dosage: 70 MG/M2 PER-CYCLE; IV
     Route: 042
  5. .... [Concomitant]

REACTIONS (4)
  - ILEUS [None]
  - METASTATIC NEOPLASM [None]
  - NEUTROPENIA [None]
  - PERITONEAL CARCINOMA [None]
